FAERS Safety Report 9626214 (Version 2)
Quarter: 2013Q4

REPORT INFORMATION
  Report Type: Spontaneous
  Country: JP (occurrence: JP)
  Receive Date: 20131016
  Receipt Date: 20131031
  Transmission Date: 20140711
  Serious: Yes (Other)
  Sender: FDA-Public Use
  Company Number: JP-OTSUKA-JP-2013-14286

PATIENT
  Age: 72 Year
  Sex: Female

DRUGS (1)
  1. PLETAAL [Suspect]
     Indication: INTERMITTENT CLAUDICATION
     Dosage: UNK
     Route: 048

REACTIONS (1)
  - Peripheral artery aneurysm [Unknown]
